FAERS Safety Report 4553420-9 (Version None)
Quarter: 2005Q1

REPORT INFORMATION
  Report Type: 
  Country: None (occurrence: None)
  Receive Date: 20050112
  Receipt Date: 20041228
  Transmission Date: 20050727
  Serious: Yes (Other)
  Sender: FDA-Public Use
  Company Number: 2004-12-1318

PATIENT
  Sex: Female

DRUGS (1)
  1. DIPRODERM     OTIC SOLUTION [Suspect]
     Indication: EAR INFECTION
     Dosage: 1 DOSE BID EYE
     Route: 047
     Dates: start: 20041203, end: 20041211

REACTIONS (1)
  - CORNEAL OEDEMA [None]
